FAERS Safety Report 23773105 (Version 2)
Quarter: 2024Q3

REPORT INFORMATION
  Report Type: Spontaneous
  Country: RO (occurrence: RO)
  Receive Date: 20240423
  Receipt Date: 20240923
  Transmission Date: 20241016
  Serious: No
  Sender: ROCHE
  Company Number: RO-ROCHE-3535117

PATIENT
  Age: 63 Year
  Sex: Female

DRUGS (5)
  1. TRASTUZUMAB [Suspect]
     Active Substance: TRASTUZUMAB
     Indication: Breast neoplasm
     Dosage: TRASTUZUMAB 8 MG/KG BW AND PERTUZUMAB 840 MG LOADING DOSES, THEN TRASTUZUMAB 6 MG/KG BW AND PERTUZUM
     Route: 041
     Dates: start: 202206, end: 202210
  2. PERTUZUMAB [Suspect]
     Active Substance: PERTUZUMAB
     Indication: Breast neoplasm
     Dosage: TRASTUZUMAB 8 MG/KG BW AND PERTUZUMAB 840 MG LOADING DOSES, THEN TRASTUZUMAB 6 MG/KG BW AND PERTUZUM
     Route: 065
     Dates: start: 202206, end: 202210
  3. DOCETAXEL [Suspect]
     Active Substance: DOCETAXEL\DOCETAXEL ANHYDROUS
     Indication: Breast neoplasm
     Route: 065
  4. LETROZOLE [Suspect]
     Active Substance: LETROZOLE
     Indication: Breast neoplasm
     Route: 065
  5. CARBOPLATIN [Suspect]
     Active Substance: CARBOPLATIN
     Indication: Breast neoplasm
     Route: 065

REACTIONS (2)
  - Nodule [Unknown]
  - Pulmonary mass [Unknown]
